FAERS Safety Report 13065920 (Version 2)
Quarter: 2017Q3

REPORT INFORMATION
  Report Type: Spontaneous
  Country: DE (occurrence: DE)
  Receive Date: 20161227
  Receipt Date: 20170822
  Transmission Date: 20171127
  Serious: Yes (Death, Hospitalization)
  Sender: FDA-Public Use
  Company Number: DE-IMPAX LABORATORIES, INC-2016-IPXL-02414

PATIENT
  Age: 13 Year
  Sex: Male

DRUGS (1)
  1. CHLOROQUINE PHOSPHATE. [Suspect]
     Active Substance: CHLOROQUINE PHOSPHATE
     Indication: SUICIDE ATTEMPT
     Dosage: UNK
     Route: 065

REACTIONS (8)
  - Atrioventricular block first degree [Unknown]
  - Completed suicide [Fatal]
  - Myoclonus [Unknown]
  - Vomiting [Unknown]
  - Intentional overdose [Fatal]
  - Brain injury [Fatal]
  - Loss of consciousness [Unknown]
  - Cardiac arrest [Fatal]
